FAERS Safety Report 5787287-8 (Version None)
Quarter: 2008Q2

REPORT INFORMATION
  Report Type: 
  Country: None (occurrence: None)
  Receive Date: 20080625
  Receipt Date: 20070919
  Transmission Date: 20081010
  Serious: No
  Sender: FDA-Public Use
  Company Number: US-ASTRAZENECA-2007UW22066

PATIENT
  Age: 73 Year
  Sex: Female

DRUGS (4)
  1. PULMICORT-100 [Suspect]
     Indication: ASTHMA
     Route: 055
  2. DIOVAN [Concomitant]
  3. COUMADIN [Concomitant]
  4. XALATAN [Concomitant]

REACTIONS (2)
  - ACCIDENTAL OVERDOSE [None]
  - MEDICATION ERROR [None]
